FAERS Safety Report 23688487 (Version 1)
Quarter: 2024Q1

REPORT INFORMATION
  Report Type: Spontaneous
  Country: TH (occurrence: TH)
  Receive Date: 20240329
  Receipt Date: 20240329
  Transmission Date: 20240410
  Serious: Yes (Hospitalization, Other)
  Sender: FDA-Public Use
  Company Number: TH-AMERICAN REGENT, INC.-2024ARI00003

PATIENT
  Age: 57 Year
  Sex: Female

DRUGS (8)
  1. PACLITAXEL [Suspect]
     Active Substance: PACLITAXEL
     Indication: Breast cancer stage II
     Dosage: 80 MG/M2, WEEKLY, OVER 1 HOUR (PLANNED FOR 12 CYCLES)
     Route: 042
  2. DEXAMETHASONE [Concomitant]
     Active Substance: DEXAMETHASONE
     Indication: Premedication
     Dosage: UNK; ADMINISTERED PRIOR TO THE PACLITAXEL INFUSION
  3. DEXAMETHASONE [Concomitant]
     Active Substance: DEXAMETHASONE
     Dosage: 3-DAY COURSE OF 8 MG PER DAY POST PACLITAXEL INFUSION
  4. DEXAMETHASONE [Concomitant]
     Active Substance: DEXAMETHASONE
     Dosage: 10 MG EVERY 12 HOURS
     Route: 042
  5. DEXAMETHASONE [Concomitant]
     Active Substance: DEXAMETHASONE
     Dosage: 8 MG EVERY 12 HOURS
  6. DEXAMETHASONE [Concomitant]
     Active Substance: DEXAMETHASONE
     Dosage: UNK (TRANSITIONED FROM INTRAVENOUS METHYLPREDNISOLONE TO DEXAMETHASONE); CONTINUED FOR 30 DAYS
     Route: 042
  7. CHLORPHENIRAMINE [Concomitant]
     Active Substance: CHLORPHENIRAMINE
     Indication: Premedication
     Dosage: UNK; ADMINISTERED PRIOR TO THE PACLITAXEL INFUSION
  8. ONDANSETRON [Concomitant]
     Active Substance: ONDANSETRON
     Indication: Premedication
     Dosage: UNK; ADMINISTERED PRIOR TO THE PACLITAXEL INFUSION

REACTIONS (6)
  - Acute respiratory failure [Recovering/Resolving]
  - Acute respiratory distress syndrome [Recovering/Resolving]
  - Stress cardiomyopathy [Recovering/Resolving]
  - Organising pneumonia [Recovering/Resolving]
  - Neuropathy peripheral [Unknown]
  - Pulmonary embolism [Unknown]
